FAERS Safety Report 25888208 (Version 1)
Quarter: 2025Q4

REPORT INFORMATION
  Report Type: Spontaneous
  Country: US (occurrence: US)
  Receive Date: 20251007
  Receipt Date: 20251007
  Transmission Date: 20260118
  Serious: Yes (Hospitalization)
  Sender: GRIFOLS
  Company Number: US-IGSA-BIG0038554

PATIENT
  Age: 88 Year
  Sex: Female

DRUGS (1)
  1. GAMUNEX-C [Suspect]
     Active Substance: HUMAN IMMUNOGLOBULIN G
     Indication: Chronic inflammatory demyelinating polyradiculoneuropathy
     Dosage: 60 GRAM, Q.3WK.
     Route: 042

REACTIONS (3)
  - Full blood count decreased [Unknown]
  - Abnormal behaviour [Unknown]
  - Transfusion [Unknown]

NARRATIVE: CASE EVENT DATE: 20250930
